FAERS Safety Report 5318489-2 (Version None)
Quarter: 2007Q2

REPORT INFORMATION
  Report Type: 
  Country: None (occurrence: None)
  Receive Date: 20070501
  Receipt Date: 20070420
  Transmission Date: 20071010
  Serious: Yes (Hospitalization)
  Sender: FDA-Public Use
  Company Number: GXKR2007GB03701

PATIENT
  Age: 87 Year
  Sex: Female

DRUGS (4)
  1. ASPIRIN [Suspect]
     Dosage: 75 MG, QD, ORAL
     Route: 048
     Dates: end: 20070410
  2. DIGOXIN [Concomitant]
  3. FLUOXETINE [Concomitant]
  4. LACTULOSE [Concomitant]

REACTIONS (1)
  - RECTAL HAEMORRHAGE [None]
